FAERS Safety Report 7412995-2 (Version None)
Quarter: 2011Q2

REPORT INFORMATION
  Report Type: 
  Country: None (occurrence: None)
  Receive Date: 20110413
  Receipt Date: 20110401
  Transmission Date: 20111010
  Serious: Yes (Hospitalization)
  Sender: FDA-Public Use
  Company Number: PHHY2011GB26896

PATIENT
  Age: 82 Year
  Sex: Male

DRUGS (7)
  1. WARFARIN SODIUM [Suspect]
     Indication: ATRIAL FIBRILLATION
     Route: 048
  2. ALFUZOSIN HYDROCHLORIDE [Concomitant]
  3. FELODIPINE [Concomitant]
  4. DIGOXIN [Concomitant]
  5. LISINOPRIL [Concomitant]
  6. SIMVASTATIN [Concomitant]
  7. BENDROFLUMETHIAZIDE [Concomitant]

REACTIONS (2)
  - BLADDER DISORDER [None]
  - HAEMATURIA [None]
